FAERS Safety Report 12262586 (Version 2)
Quarter: 2016Q2

REPORT INFORMATION
  Report Type: Spontaneous
  Country: IT (occurrence: IT)
  Receive Date: 20160413
  Receipt Date: 20160503
  Transmission Date: 20160815
  Serious: Yes (Other)
  Sender: FDA-Public Use
  Company Number: IT-TEVA-651402ACC

PATIENT

DRUGS (4)
  1. CETIRIZINE [Suspect]
     Active Substance: CETIRIZINE HYDROCHLORIDE
  2. MIZOLASTINE [Suspect]
     Active Substance: MIZOLASTINE
  3. EBASTINE [Suspect]
     Active Substance: EBASTINE
  4. DESLORATADINE. [Suspect]
     Active Substance: DESLORATADINE

REACTIONS (1)
  - Electrocardiogram QT prolonged [Unknown]
